FAERS Safety Report 17163027 (Version 2)
Quarter: 2021Q1

REPORT INFORMATION
  Report Type: Spontaneous
  Country: US (occurrence: ES)
  Receive Date: 20191217
  Receipt Date: 20210115
  Transmission Date: 20210419
  Serious: Yes (Other)
  Sender: FDA-Public Use
  Company Number: ES-TEVA-2019-ES-1152695

PATIENT
  Age: 41 Year
  Sex: Male
  Weight: 82 kg

DRUGS (12)
  1. ETOPOSIDE. [Suspect]
     Active Substance: ETOPOSIDE
     Indication: DIFFUSE LARGE B-CELL LYMPHOMA
     Dosage: UNK
     Route: 065
     Dates: start: 20190416, end: 20190603
  2. RITUXIMAB. [Suspect]
     Active Substance: RITUXIMAB
     Dosage: THERAPY END DATE ASKU, UNK
     Route: 065
     Dates: start: 20190603
  3. ETOPOSIDE. [Suspect]
     Active Substance: ETOPOSIDE
     Dosage: THERAPY END DATE ASKU, UNK
     Route: 065
     Dates: start: 20190603
  4. RITUXIMAB. [Suspect]
     Active Substance: RITUXIMAB
     Indication: DIFFUSE LARGE B-CELL LYMPHOMA
     Dosage: UNK
     Route: 065
     Dates: start: 20190416, end: 20190603
  5. CISPLATIN. [Suspect]
     Active Substance: CISPLATIN
     Indication: DIFFUSE LARGE B-CELL LYMPHOMA
     Route: 065
     Dates: start: 20190416, end: 20190420
  6. RITUXIMAB. [Suspect]
     Active Substance: RITUXIMAB
     Dosage: THERAPY END DATE: ASKU , UNK
     Route: 065
     Dates: start: 20190510
  7. IFOSFAMIDE. [Suspect]
     Active Substance: IFOSFAMIDE
     Indication: DIFFUSE LARGE B-CELL LYMPHOMA
     Dosage: UNK
     Route: 065
     Dates: start: 20190510, end: 20190603
  8. CYTARABINE. [Suspect]
     Active Substance: CYTARABINE
     Indication: DIFFUSE LARGE B-CELL LYMPHOMA
     Dosage: UNK
     Route: 065
     Dates: start: 20190416, end: 20190420
  9. CARBOPLATIN. [Suspect]
     Active Substance: CARBOPLATIN
     Indication: DIFFUSE LARGE B-CELL LYMPHOMA
     Dosage: UNK
     Route: 065
     Dates: start: 20190510, end: 20190603
  10. METHYLPREDNISOLONE. [Suspect]
     Active Substance: METHYLPREDNISOLONE
     Indication: DIFFUSE LARGE B-CELL LYMPHOMA
     Dosage: UNK
     Route: 065
     Dates: start: 20190416, end: 20190420
  11. ETOPOSIDE. [Suspect]
     Active Substance: ETOPOSIDE
     Dosage: THERAPY END DATE ASKU, UNK
     Route: 065
     Dates: start: 20190510
  12. RITUXIMAB. [Suspect]
     Active Substance: RITUXIMAB
     Dosage: UNK, THERAPY START, END DATE: ASKU
     Route: 065

REACTIONS (11)
  - Abdominal mass [Unknown]
  - Platelet count decreased [Unknown]
  - Abdominal distension [Unknown]
  - Pain [Unknown]
  - Diffuse large B-cell lymphoma refractory [Unknown]
  - Pain [Unknown]
  - White blood cell count decreased [Unknown]
  - Neutrophil count decreased [Unknown]
  - Leukocytosis [Unknown]
  - Pancytopenia [Unknown]
  - Haemoglobin decreased [Unknown]

NARRATIVE: CASE EVENT DATE: 201905
